FAERS Safety Report 5303025-7 (Version None)
Quarter: 2007Q2

REPORT INFORMATION
  Report Type: 
  Country: None (occurrence: None)
  Receive Date: 20070413
  Receipt Date: 20070403
  Transmission Date: 20071010
  Serious: Yes (Other)
  Sender: FDA-Public Use
  Company Number: GXKR2007US03175

PATIENT
  Age: 23 Year
  Sex: Male

DRUGS (1)
  1. PREDNISONE [Suspect]
     Indication: COLITIS ULCERATIVE

REACTIONS (6)
  - ABDOMINAL PAIN [None]
  - ABDOMINAL TENDERNESS [None]
  - HEART RATE INCREASED [None]
  - ILEAL PERFORATION [None]
  - PYREXIA [None]
  - STEROID WITHDRAWAL SYNDROME [None]
